FAERS Safety Report 4649965-3 (Version None)
Quarter: 2005Q2

REPORT INFORMATION
  Report Type: 
  Country: None (occurrence: None)
  Receive Date: 20050502
  Receipt Date: 20041208
  Transmission Date: 20051028
  Serious: Yes (Life-Threatening)
  Sender: FDA-Public Use
  Company Number: TH-MERCK-0412THA00002

PATIENT
  Age: 21 Month
  Sex: Male
  Weight: 13 kg

DRUGS (16)
  1. CANCIDAS [Suspect]
     Indication: ASPERGILLOSIS
     Route: 042
     Dates: start: 20030917, end: 20031110
  2. IMIPENEM [Concomitant]
     Indication: PNEUMONIA
     Route: 042
     Dates: start: 20030915, end: 20031030
  3. AMIKACIN [Concomitant]
     Indication: PNEUMONIA
     Route: 042
     Dates: start: 20030910, end: 20031007
  4. VANCOMYCIN [Concomitant]
     Route: 042
     Dates: start: 20030925, end: 20031009
  5. CHOLESTYRAMINE RESIN [Concomitant]
     Route: 048
     Dates: start: 20030916, end: 20031029
  6. AMPHOTERICIN B [Suspect]
     Indication: ASPERGILLOSIS
     Route: 042
     Dates: start: 20030915, end: 20030919
  7. RANITIDINE [Concomitant]
     Route: 065
     Dates: start: 20030101
  8. OMEPRAZOLE [Concomitant]
     Route: 065
     Dates: start: 20030101
  9. SUCRALFATE [Concomitant]
     Route: 065
     Dates: start: 20030101
  10. LACTOBACILLUS ACIDOPHILUS (AS DRUG) [Concomitant]
     Route: 065
     Dates: start: 20030101
  11. METAMUCIL-2 [Concomitant]
     Route: 065
     Dates: start: 20030101
  12. BISOLVON [Concomitant]
     Route: 065
     Dates: start: 20030101
  13. DOPAMINE HYDROCHLORIDE [Concomitant]
     Route: 065
     Dates: start: 20030101
  14. PREDNISOLONE [Concomitant]
     Route: 065
     Dates: start: 20030101
  15. NEUPOGEN [Concomitant]
     Route: 065
     Dates: start: 20030101
  16. TAZOCIN [Concomitant]
     Route: 065
     Dates: start: 20030101

REACTIONS (8)
  - BLOOD SODIUM INCREASED [None]
  - DISSEMINATED INTRAVASCULAR COAGULATION [None]
  - ELECTROCARDIOGRAM T WAVE PEAKED [None]
  - HYPERKALAEMIA [None]
  - HYPOKALAEMIA [None]
  - JAUNDICE CHOLESTATIC [None]
  - METABOLIC ACIDOSIS [None]
  - VENTRICULAR TACHYCARDIA [None]
